FAERS Safety Report 7512761-3 (Version None)
Quarter: 2011Q2

REPORT INFORMATION
  Report Type: 
  Country: None (occurrence: None)
  Receive Date: 20110531
  Receipt Date: 20110527
  Transmission Date: 20111010
  Serious: Yes (Other)
  Sender: FDA-Public Use
  Company Number: A0926652A

PATIENT
  Age: 36 Year
  Sex: Female

DRUGS (1)
  1. ACITRETIN [Suspect]
     Indication: ICHTHYOSIS
     Route: 048

REACTIONS (16)
  - URINARY SEDIMENT PRESENT [None]
  - DRY MOUTH [None]
  - ORAL MUCOSA EROSION [None]
  - DYSPHAGIA [None]
  - LEUKOCYTURIA [None]
  - URETHRAL DISORDER [None]
  - DYSURIA [None]
  - ALOPECIA [None]
  - DRUG INEFFECTIVE [None]
  - PUBIC PAIN [None]
  - HAEMATURIA [None]
  - URINARY TRACT DISORDER [None]
  - CONDITION AGGRAVATED [None]
  - ONYCHOCLASIS [None]
  - ICHTHYOSIS [None]
  - BACTERIAL TEST POSITIVE [None]
